FAERS Safety Report 10441242 (Version 1)
Quarter: 2014Q3

REPORT INFORMATION
  Report Type: Spontaneous
  Country: US (occurrence: None)
  Receive Date: 20140908
  Receipt Date: 20140908
  Transmission Date: 20150326
  Serious: Yes (Other)
  Sender: FDA-Public Use
  Company Number: None

PATIENT
  Age: 60 Year
  Sex: Female

DRUGS (1)
  1. BOTOX [Suspect]
     Active Substance: ONABOTULINUMTOXINA
     Dosage: STRENGTH 200, INJECTABLE, EVERY THREE MONTHS
     Route: 030
     Dates: start: 20140721

REACTIONS (1)
  - Sensory disturbance [None]

NARRATIVE: CASE EVENT DATE: 20140904
